FAERS Safety Report 7113075-6 (Version None)
Quarter: 2010Q4

REPORT INFORMATION
  Report Type: 
  Country: None (occurrence: None)
  Receive Date: 20101119
  Receipt Date: 20101111
  Transmission Date: 20110411
  Serious: Yes (Other)
  Sender: FDA-Public Use
  Company Number: US-US-EMD SERONO, INC.-7027292

PATIENT
  Sex: Female
  Weight: 56 kg

DRUGS (4)
  1. REBIF [Suspect]
     Indication: MULTIPLE SCLEROSIS
     Route: 058
     Dates: start: 20100814
  2. DEPAKOTE [Concomitant]
     Indication: BIPOLAR DISORDER
  3. DEPAKOTE [Concomitant]
     Indication: MIGRAINE
  4. UNSPECIFIED MEDICATIONS [Concomitant]

REACTIONS (8)
  - BULIMIA NERVOSA [None]
  - DECREASED APPETITE [None]
  - INJECTION SITE ERYTHEMA [None]
  - INJECTION SITE INDURATION [None]
  - INJECTION SITE PAIN [None]
  - PNEUMONIA [None]
  - RED BLOOD CELL COUNT DECREASED [None]
  - WHITE BLOOD CELL COUNT DECREASED [None]
